FAERS Safety Report 10608748 (Version 2)
Quarter: 2015Q3

REPORT INFORMATION
  Report Type: Report from Study
  Country: US (occurrence: US)
  Receive Date: 20141125
  Receipt Date: 20150709
  Transmission Date: 20151125
  Serious: Yes (Other)
  Sender: FDA-Public Use
  Company Number: US-GILEAD-2014-0124158

PATIENT
  Age: 52 Year
  Sex: Female

DRUGS (14)
  1. AMBIEN [Concomitant]
     Active Substance: ZOLPIDEM TARTRATE
  2. IPRATROPIUM BROMIDE/ALBUTEROL SULFATE [Concomitant]
     Active Substance: ALBUTEROL SULFATE\IPRATROPIUM BROMIDE
  3. ADVAIR HFA [Concomitant]
     Active Substance: FLUTICASONE PROPIONATE\SALMETEROL XINAFOATE
  4. TEMAZEPAM. [Concomitant]
     Active Substance: TEMAZEPAM
  5. VENTOLIN [Concomitant]
     Active Substance: ALBUTEROL SULFATE
  6. PREDNISONE. [Concomitant]
     Active Substance: PREDNISONE
  7. AMBRISENTAN [Suspect]
     Active Substance: AMBRISENTAN
     Indication: PULMONARY ARTERIAL HYPERTENSION
     Dosage: 5 MG, QD
     Route: 065
     Dates: start: 20140826
  8. PANTOPRAZOLE [Concomitant]
     Active Substance: PANTOPRAZOLE SODIUM
  9. LASIX [Concomitant]
     Active Substance: FUROSEMIDE
  10. OXYCONTIN [Concomitant]
     Active Substance: OXYCODONE HYDROCHLORIDE
  11. GABAPENTIN. [Concomitant]
     Active Substance: GABAPENTIN
  12. LEVOTHYROXINE. [Concomitant]
     Active Substance: LEVOTHYROXINE
  13. SERTRALINE [Concomitant]
     Active Substance: SERTRALINE HYDROCHLORIDE
  14. LISINOPRIL. [Concomitant]
     Active Substance: LISINOPRIL

REACTIONS (5)
  - Heart rate increased [Recovered/Resolved]
  - Migraine [Unknown]
  - Oedema [Not Recovered/Not Resolved]
  - Productive cough [Unknown]
  - Palpitations [Unknown]

NARRATIVE: CASE EVENT DATE: 20141116
